FAERS Safety Report 8531774-6 (Version None)
Quarter: 2012Q3

REPORT INFORMATION
  Report Type: 
  Country: None (occurrence: None)
  Receive Date: 20120711
  Receipt Date: 20120626
  Transmission Date: 20120928
  Serious: Yes (Death, Other)
  Sender: FDA-Public Use
  Company Number: 2012-001668

PATIENT
  Age: 38 Year
  Sex: Female

DRUGS (12)
  1. SENNOSIDE (SENNOSIDE A+B) [Concomitant]
  2. INTAL [Concomitant]
  3. ONON (PRANKLUKAST) [Suspect]
     Indication: ASTHMA
     Dosage: 180 MG, ORAL
     Route: 048
     Dates: start: 20100301
  4. GLYCEROL 2.6% [Concomitant]
  5. DEPAS (ETIZOLAM) [Concomitant]
  6. ALL OTHER THERAPEUTICA PRODUCTS [Concomitant]
  7. POLMICORT (BUDESONIDE) [Concomitant]
  8. DIDRONEL [Suspect]
     Indication: OSTEOPOROSIS
     Dosage: 200 MG, PER DAY, ORAL
     Route: 048
     Dates: start: 20100510, end: 20120124
  9. ARDERPHYLLIN (THEOPHYLLINE) [Concomitant]
  10. PROMAC /01312301/ (POLAPREZINC) [Suspect]
     Indication: ZINC DEFICIENCY
     Dosage: 150 MG, ORAL
     Route: 048
     Dates: start: 20100401, end: 20120412
  11. VALPROATE SODIUM [Suspect]
     Indication: EPILEPSY
     Dosage: 498 MG,QD, ORAL
     Route: 048
     Dates: start: 19740201
  12. MUCODYNE (CARBOCISTEINE) [Concomitant]

REACTIONS (15)
  - ASTHMA [None]
  - IRON DEFICIENCY [None]
  - ACUTE RESPIRATORY DISTRESS SYNDROME [None]
  - NEUTROPHIL COUNT DECREASED [None]
  - PYREXIA [None]
  - URINE OUTPUT DECREASED [None]
  - PNEUMONIA [None]
  - SEPSIS [None]
  - OEDEMA [None]
  - PSEUDOMONAS INFECTION [None]
  - CONDITION AGGRAVATED [None]
  - HYPOALBUMINAEMIA [None]
  - ANAEMIA [None]
  - WHITE BLOOD CELL COUNT DECREASED [None]
  - HYPOXIA [None]
